FAERS Safety Report 21493167 (Version 1)
Quarter: 2022Q4

REPORT INFORMATION
  Report Type: Spontaneous
  Country: US (occurrence: None)
  Receive Date: 20221020
  Receipt Date: 20221020
  Transmission Date: 20230113
  Serious: Yes (Hospitalization, Other)
  Sender: FDA-Public Use
  Company Number: None

PATIENT
  Age: 36 Year
  Sex: Female
  Weight: 75.3 kg

DRUGS (6)
  1. METOCLOPRAMIDE [Suspect]
     Active Substance: METOCLOPRAMIDE
     Indication: Migraine
     Dosage: 10 MG PRN PO
     Route: 048
     Dates: start: 20220131
  2. TYLENOL [Suspect]
     Active Substance: ACETAMINOPHEN
     Indication: Migraine
     Dosage: 500 PRN PO?
     Route: 048
     Dates: start: 20220131
  3. BENADRYL [Suspect]
     Active Substance: DIPHENHYDRAMINE HYDROCHLORIDE
     Indication: Migraine
     Dosage: 25MG PRN PO
     Route: 048
  4. DOXEPIN [Concomitant]
     Active Substance: DOXEPIN
  5. MAGNESIUM GLYCINATE [Concomitant]
     Active Substance: MAGNESIUM GLYCINATE
  6. BETAMETHASONE [Concomitant]
     Active Substance: BETAMETHASONE

REACTIONS (5)
  - Vaginal discharge [None]
  - Premature rupture of membranes [None]
  - Exposure during pregnancy [None]
  - Immature respiratory system [None]
  - Antibiotic prophylaxis [None]

NARRATIVE: CASE EVENT DATE: 20220812
